FAERS Safety Report 20191877 (Version 3)
Quarter: 2022Q1

REPORT INFORMATION
  Report Type: Spontaneous
  Country: US (occurrence: US)
  Receive Date: 20211216
  Receipt Date: 20220329
  Transmission Date: 20220423
  Serious: Yes (Other)
  Sender: FDA-Public Use
  Company Number: US-GILEAD-2021-0560437

PATIENT
  Age: 59 Year
  Sex: Male

DRUGS (3)
  1. VIREAD [Suspect]
     Active Substance: TENOFOVIR DISOPROXIL FUMARATE
     Indication: HIV infection
     Dosage: UNK
     Route: 065
     Dates: start: 200506, end: 200707
  2. TRUVADA [Suspect]
     Active Substance: EMTRICITABINE\TENOFOVIR DISOPROXIL FUMARATE
     Indication: HIV infection
     Dosage: UNK
     Route: 048
     Dates: start: 20100409, end: 20160724
  3. DESCOVY [Concomitant]
     Active Substance: EMTRICITABINE\TENOFOVIR ALAFENAMIDE FUMARATE

REACTIONS (9)
  - Osteoporosis [Recovered/Resolved]
  - Multiple fractures [Unknown]
  - Nephrolithiasis [Not Recovered/Not Resolved]
  - Neuropathic arthropathy [Not Recovered/Not Resolved]
  - Osteopenia [Unknown]
  - Arthropathy [Recovered/Resolved]
  - Tendon rupture [Recovered/Resolved]
  - Foot fracture [Not Recovered/Not Resolved]
  - Bone loss [Recovered/Resolved]

NARRATIVE: CASE EVENT DATE: 20161126
